FAERS Safety Report 9490763 (Version 2)
Quarter: 2013Q4

REPORT INFORMATION
  Report Type: Spontaneous
  Country: NL (occurrence: None)
  Receive Date: 20130826
  Receipt Date: 20131022
  Transmission Date: 20140711
  Serious: Yes (Other)
  Sender: FDA-Public Use
  Company Number: 2013-1350

PATIENT
  Age: 63 Year
  Sex: Male
  Weight: 69 kg

DRUGS (4)
  1. CARFILZOMIB [Suspect]
     Indication: PLASMA CELL MYELOMA
     Route: 042
     Dates: start: 2013
  2. DEXAMETHASONE [Concomitant]
  3. THALIDOMIDE [Concomitant]
  4. NADROPARIN [Concomitant]

REACTIONS (2)
  - Deep vein thrombosis [None]
  - Plasma cell myeloma [None]
